FAERS Safety Report 7305647-0 (Version None)
Quarter: 2011Q1

REPORT INFORMATION
  Report Type: 
  Country: None (occurrence: None)
  Receive Date: 20110222
  Receipt Date: 20110214
  Transmission Date: 20110831
  Serious: Yes (Hospitalization, Congenital Anomaly)
  Sender: FDA-Public Use
  Company Number: A0687272A

PATIENT
  Sex: Female
  Weight: 1.3 kg

DRUGS (1)
  1. PAXIL [Suspect]
     Indication: ANXIETY
     Dosage: 20MG PER DAY
     Route: 064
     Dates: start: 20020201, end: 20020801

REACTIONS (7)
  - ATRIAL SEPTAL DEFECT [None]
  - HYPOPLASTIC LEFT HEART SYNDROME [None]
  - DRUG EXPOSURE DURING PREGNANCY [None]
  - VENTRICULAR SEPTAL DEFECT [None]
  - HYPOPLASTIC RIGHT HEART SYNDROME [None]
  - PULMONARY ARTERY STENOSIS CONGENITAL [None]
  - PATENT DUCTUS ARTERIOSUS [None]
